FAERS Safety Report 25689172 (Version 1)
Quarter: 2025Q3

REPORT INFORMATION
  Report Type: Spontaneous
  Country: BR (occurrence: BR)
  Receive Date: 20250818
  Receipt Date: 20250818
  Transmission Date: 20251021
  Serious: Yes (Death, Other)
  Sender: DAIICHI
  Company Number: BR-DSJP-DS-2025-159296-BR

PATIENT
  Age: 37 Year
  Sex: Female

DRUGS (1)
  1. ENHERTU [Suspect]
     Active Substance: FAM-TRASTUZUMAB DERUXTECAN-NXKI
     Indication: Breast cancer
     Route: 065
     Dates: start: 202405

REACTIONS (3)
  - Death [Fatal]
  - Cholestasis [Unknown]
  - Pancreatic injury [Unknown]

NARRATIVE: CASE EVENT DATE: 20240801
